FAERS Safety Report 5194622-0 (Version None)
Quarter: 2006Q4

REPORT INFORMATION
  Report Type: 
  Country: None (occurrence: None)
  Receive Date: 20061229
  Receipt Date: 20061221
  Transmission Date: 20070319
  Serious: Yes (Hospitalization)
  Sender: FDA-Public Use
  Company Number: JP-JNJFOC-20061006956

PATIENT
  Sex: Male

DRUGS (12)
  1. RISPERDAL [Suspect]
     Route: 048
  2. RISPERDAL [Suspect]
     Indication: AFFECTIVE DISORDER
     Route: 048
  3. RISPERDAL [Suspect]
     Indication: AUTISM SPECTRUM DISORDER
     Route: 048
  4. BIPERIDEN HYDROCHLORIDE TAB [Concomitant]
     Route: 048
  5. BIPERIDEN HYDROCHLORIDE TAB [Concomitant]
     Route: 048
  6. BIPERIDEN HYDROCHLORIDE TAB [Concomitant]
     Indication: PROPHYLAXIS
     Route: 048
  7. TEGRETOL [Concomitant]
     Route: 048
  8. TEGRETOL [Concomitant]
     Route: 048
  9. LIMAS [Concomitant]
     Route: 048
  10. NEULEPTIL [Concomitant]
     Route: 048
  11. NEULEPTIL [Concomitant]
     Route: 048
  12. SULPIRIDE [Concomitant]

REACTIONS (4)
  - BLOOD GLUCOSE INCREASED [None]
  - GAIT DISTURBANCE [None]
  - HYPERPHAGIA [None]
  - RHABDOMYOLYSIS [None]
